FAERS Safety Report 21284007 (Version 2)
Quarter: 2022Q4

REPORT INFORMATION
  Report Type: Spontaneous
  Country: TH (occurrence: TH)
  Receive Date: 20220901
  Receipt Date: 20221221
  Transmission Date: 20230112
  Serious: Yes (Hospitalization, Other)
  Sender: FDA-Public Use
  Company Number: TH-STRIDES ARCOLAB LIMITED-2022SP010978

PATIENT
  Age: 70 Year
  Sex: Female

DRUGS (8)
  1. ALPRAZOLAM [Suspect]
     Active Substance: ALPRAZOLAM
     Indication: Product used for unknown indication
     Dosage: UNK, 80 TABLETS OF ALPRAZOLAM AND LORAZEPAM
     Route: 065
  2. LORAZEPAM [Suspect]
     Active Substance: LORAZEPAM
     Indication: Product used for unknown indication
     Dosage: UNK, 80 TABLETS OF ALPRAZOLAM AND LORAZEPAM
     Route: 065
  3. DIAZEPAM [Suspect]
     Active Substance: DIAZEPAM
     Indication: Insomnia
     Dosage: UNK
     Route: 065
  4. TRAZODONE [Suspect]
     Active Substance: TRAZODONE HYDROCHLORIDE
     Indication: Insomnia
     Dosage: UNK
     Route: 065
  5. OXAZEPAM [Concomitant]
     Active Substance: OXAZEPAM
     Indication: Product used for unknown indication
     Dosage: UNK
     Route: 065
  6. CLARITHROMYCIN [Concomitant]
     Active Substance: CLARITHROMYCIN
     Indication: Helicobacter gastritis
     Dosage: UNK
     Route: 065
  7. OMEPRAZOLE [Concomitant]
     Active Substance: OMEPRAZOLE
     Indication: Helicobacter gastritis
     Dosage: UNK
     Route: 065
  8. AMOXICILLIN [Concomitant]
     Active Substance: AMOXICILLIN
     Indication: Helicobacter gastritis
     Dosage: UNK
     Route: 065

REACTIONS (14)
  - Miosis [Unknown]
  - Hypopnoea [Recovered/Resolved]
  - Areflexia [Unknown]
  - Hypothermia [Recovered/Resolved]
  - Hypertonia [Recovered/Resolved]
  - Hyperreflexia [Recovered/Resolved]
  - Reflexes abnormal [Recovered/Resolved]
  - Loss of consciousness [Unknown]
  - Sedation [Recovered/Resolved]
  - Coma [Recovered/Resolved]
  - Toxicity to various agents [Unknown]
  - Overdose [Unknown]
  - Intentional product misuse [Unknown]
  - Off label use [Unknown]
